FAERS Safety Report 5622114-0 (Version None)
Quarter: 2008Q1

REPORT INFORMATION
  Report Type: 
  Country: None (occurrence: None)
  Receive Date: 20080211
  Receipt Date: 20080128
  Transmission Date: 20080703
  Serious: Yes (Death)
  Sender: FDA-Public Use
  Company Number: JP-ROCHE-543942

PATIENT
  Age: 72 Year
  Sex: Female
  Weight: 40.2 kg

DRUGS (5)
  1. METHOXY POLYETHYLENE GLYCOL-EPOETIN BETA [Suspect]
     Route: 058
     Dates: start: 20070524, end: 20080103
  2. LASIX [Concomitant]
     Dates: start: 20060123
  3. ZYLORIC [Concomitant]
     Dates: start: 20060123
  4. CALCIUM CARBONATE [Concomitant]
     Dates: start: 20060123
  5. UNSPECIFIED DRUG [Concomitant]
     Dosage: REPORTED AS: SPHERICAL CARBONACEOUSE ABSORBENT.
     Dates: start: 20060123

REACTIONS (1)
  - SUDDEN DEATH [None]
